FAERS Safety Report 12211781 (Version 1)
Quarter: 2016Q1

REPORT INFORMATION
  Report Type: Spontaneous
  Country: IT (occurrence: IT)
  Receive Date: 20160325
  Receipt Date: 20160325
  Transmission Date: 20160526
  Serious: Yes (Other)
  Sender: FDA-Public Use
  Company Number: IT-ELI_LILLY_AND_COMPANY-IT201603006434

PATIENT
  Age: 28 Year
  Sex: Male

DRUGS (1)
  1. CIALIS [Suspect]
     Active Substance: TADALAFIL
     Indication: BENIGN PROSTATIC HYPERPLASIA
     Dosage: 5 MG, QD
     Route: 065

REACTIONS (9)
  - Oral pustule [Unknown]
  - Anal pruritus [Unknown]
  - Feeling hot [Unknown]
  - Rash generalised [Unknown]
  - Mouth swelling [Unknown]
  - Erythema multiforme [Unknown]
  - Feeding disorder [Unknown]
  - Hypersensitivity [Unknown]
  - Macule [Unknown]
